FAERS Safety Report 10054910 (Version 1)
Quarter: 2014Q2

REPORT INFORMATION
  Report Type: Spontaneous
  Country: US (occurrence: US)
  Receive Date: 20140402
  Receipt Date: 20140402
  Transmission Date: 20141212
  Serious: Yes (Other)
  Sender: FDA-Public Use
  Company Number: US-BAUSCH-BL-2014-001589

PATIENT
  Sex: Male

DRUGS (8)
  1. FLUORESCEIN SODIUM [Suspect]
     Indication: INTRAOCULAR PRESSURE TEST
     Route: 047
     Dates: start: 20130926, end: 20130926
  2. FLUORESCEIN SODIUM [Suspect]
     Route: 047
     Dates: start: 20140318, end: 20140318
  3. PROPARACAINE HYDROCHLORIDE OPHTHALMIC SOLUTION USP 0.5% [Suspect]
     Indication: INTRAOCULAR PRESSURE TEST
     Route: 047
     Dates: start: 20130926, end: 20130926
  4. PROPARACAINE HYDROCHLORIDE OPHTHALMIC SOLUTION USP 0.5% [Suspect]
     Route: 047
     Dates: start: 20140318, end: 20140318
  5. OCUVITE (PRODUCT NOT SPECIFIED) [Concomitant]
     Indication: PRODUCT USED FOR UNKNOWN INDICATION
     Route: 048
  6. CENTRUM SILVER [Concomitant]
     Indication: PRODUCT USED FOR UNKNOWN INDICATION
  7. VITAMIN A [Concomitant]
     Indication: PRODUCT USED FOR UNKNOWN INDICATION
  8. DORZOL EYE DROPS [Concomitant]
     Indication: PRODUCT USED FOR UNKNOWN INDICATION

REACTIONS (3)
  - Visual acuity reduced [Unknown]
  - Eye haemorrhage [Unknown]
  - Eye discharge [Unknown]
